FAERS Safety Report 24540520 (Version 1)
Quarter: 2024Q4

REPORT INFORMATION
  Report Type: Spontaneous
  Country: US (occurrence: None)
  Receive Date: 20241023
  Receipt Date: 20241023
  Transmission Date: 20250114
  Serious: Yes (Life-Threatening, Hospitalization, Disabling, Other)
  Sender: Public
  Company Number: None

PATIENT
  Age: 19 Year
  Sex: Female
  Weight: 52.16 kg

DRUGS (15)
  1. INJECTAFER [Suspect]
     Active Substance: FERRIC CARBOXYMALTOSE
     Indication: Anaemia
     Dosage: OTHER QUANTITY : 1;?
     Route: 042
     Dates: start: 20240516, end: 20240516
  2. Solu-Cortel [Concomitant]
  3. Fludrocortisone Acetate 0.1 [Concomitant]
  4. LEVOTHYROXINE [Concomitant]
     Active Substance: LEVOTHYROXINE
  5. POTASSIUM CHLORIDE [Concomitant]
     Active Substance: POTASSIUM CHLORIDE
  6. Keppra (Levetiracetam) 500mg [Concomitant]
  7. Keppra (Levetiracetam) 750mg [Concomitant]
  8. Trileptal (Oxcarbazepine) 450mg [Concomitant]
  9. Xyzau Levocetirizine 5mg [Concomitant]
  10. DEXILANT [Concomitant]
     Active Substance: DEXLANSOPRAZOLE
  11. FLUTICASONE [Concomitant]
     Active Substance: FLUTICASONE
  12. Alvesco 160mcg Inhaled [Concomitant]
  13. Symbicort 80mcg/ [Concomitant]
  14. Hizentra 6g Sub-Q 6g solution [Concomitant]
  15. Gastrostomy Tube 3000ml [Concomitant]

REACTIONS (6)
  - Fatigue [None]
  - Pyrexia [None]
  - Adrenocortical insufficiency acute [None]
  - Hypophosphataemia [None]
  - Hypokalaemia [None]
  - Impaired quality of life [None]

NARRATIVE: CASE EVENT DATE: 20240516
